FAERS Safety Report 17018309 (Version 2)
Quarter: 2019Q4

REPORT INFORMATION
  Report Type: Report from Study
  Country: JP (occurrence: JP)
  Receive Date: 20191111
  Receipt Date: 20191205
  Transmission Date: 20200122
  Serious: Yes (Hospitalization)
  Sender: FDA-Public Use
  Company Number: JP-DSJP-DSJ-2019-143174AA

PATIENT

DRUGS (12)
  1. XARELTO [Concomitant]
     Active Substance: RIVAROXABAN
     Dosage: 10MG/DAY
     Route: 048
     Dates: end: 20170910
  2. ALLELOCK [Concomitant]
     Active Substance: OLOPATADINE HYDROCHLORIDE
     Dosage: 10MG/DAY
     Route: 048
     Dates: start: 20180402
  3. EDOXABAN [Suspect]
     Active Substance: EDOXABAN TOSYLATE
     Dosage: 30 MG, QD
     Route: 048
     Dates: start: 20191027
  4. ALDACTONE [Concomitant]
     Active Substance: SPIRONOLACTONE
     Dosage: 25MG/DAY
     Route: 048
     Dates: end: 20170911
  5. LENDORMIN [Concomitant]
     Active Substance: BROTIZOLAM
     Dosage: 0.25MG/DAY
     Route: 048
  6. VASOLAN                            /00014302/ [Concomitant]
     Active Substance: VERAPAMIL HYDROCHLORIDE
     Indication: ATRIAL FIBRILLATION
     Dosage: 80MG/DAY
     Route: 048
     Dates: end: 20180603
  7. LUSEFI [Concomitant]
     Active Substance: LUSEOGLIFLOZIN
     Dosage: 2.5MG/DAY
     Route: 048
     Dates: start: 20180604, end: 20190113
  8. GASTER [Concomitant]
     Active Substance: FAMOTIDINE
     Dosage: 20MG/DAY
     Route: 048
  9. EDOXABAN [Suspect]
     Active Substance: EDOXABAN TOSYLATE
     Indication: ATRIAL FIBRILLATION
     Dosage: 30 MG, QD
     Route: 048
     Dates: start: 20170911, end: 20191024
  10. NU-LOTAN [Concomitant]
     Active Substance: LOSARTAN POTASSIUM
     Dosage: 50MG/DAY
     Route: 048
  11. HYDROCHLOROTHIAZIDE. [Concomitant]
     Active Substance: HYDROCHLOROTHIAZIDE
     Dosage: 12.5MG/DAY
     Route: 048
  12. ARTIST [Concomitant]
     Active Substance: CARVEDILOL
     Indication: ATRIAL FIBRILLATION
     Dosage: 20MG/DAY
     Route: 048

REACTIONS (1)
  - Small intestinal perforation [Not Recovered/Not Resolved]

NARRATIVE: CASE EVENT DATE: 20191025
